FAERS Safety Report 14308209 (Version 1)
Quarter: 2017Q4

REPORT INFORMATION
  Report Type: Spontaneous
  Country: US (occurrence: US)
  Receive Date: 20171219
  Receipt Date: 20171219
  Transmission Date: 20180321
  Serious: No
  Sender: FDA-Public Use
  Company Number: None

PATIENT
  Age: 36 Year
  Sex: Female

DRUGS (1)
  1. C-PROGESTERONE IN ETHYL OLEATE 50MG/ML MPT [Suspect]
     Active Substance: PROGESTERONE
     Indication: INFERTILITY
     Dosage: 50MG (1ML) TWICE DAILY INTRAMUSCULAR INJECTION
     Route: 030
     Dates: start: 20171215, end: 20171217

REACTIONS (2)
  - Injection site pain [None]
  - Injection site erythema [None]

NARRATIVE: CASE EVENT DATE: 20171215
